FAERS Safety Report 20867942 (Version 1)
Quarter: 2022Q2

REPORT INFORMATION
  Report Type: Report from Study
  Country: CO (occurrence: CO)
  Receive Date: 20220524
  Receipt Date: 20220524
  Transmission Date: 20220720
  Serious: Yes (Other)
  Sender: FDA-Public Use
  Company Number: CO-NOVARTISPH-NVSC2022CO115577

PATIENT
  Sex: Female

DRUGS (2)
  1. LOSARTAN [Suspect]
     Active Substance: LOSARTAN
     Indication: Blood pressure increased
     Dosage: 50 MG, QD, (STARTED MORE THAN 10 YEARS AGO)
     Route: 048
  2. NIVOLUMAB [Concomitant]
     Active Substance: NIVOLUMAB
     Indication: Product used for unknown indication
     Dosage: UNK
     Route: 042
     Dates: start: 2021, end: 202202

REACTIONS (6)
  - Brain cancer metastatic [Unknown]
  - Seizure [Unknown]
  - Metastases to lung [Unknown]
  - Metastases to liver [Unknown]
  - Metastatic malignant melanoma [Unknown]
  - Chills [Unknown]

NARRATIVE: CASE EVENT DATE: 20200101
